FAERS Safety Report 4655906-5 (Version None)
Quarter: 2005Q2

REPORT INFORMATION
  Report Type: 
  Country: None (occurrence: None)
  Receive Date: 20050506
  Receipt Date: 20050506
  Transmission Date: 20051028
  Serious: Yes (Disabling)
  Sender: FDA-Public Use
  Company Number: None

PATIENT
  Sex: Female

DRUGS (2)
  1. EFFEXOR XR [Suspect]
     Indication: ANXIETY
     Dosage: 150MG  QD ORAL
     Route: 048
     Dates: start: 20040115, end: 20050405
  2. EFFEXOR XR [Suspect]
     Indication: DEPRESSION
     Dosage: 150MG  QD ORAL
     Route: 048
     Dates: start: 20040115, end: 20050405

REACTIONS (14)
  - ABNORMAL DREAMS [None]
  - ARTHRALGIA [None]
  - DECREASED ACTIVITY [None]
  - DIARRHOEA [None]
  - DISORIENTATION [None]
  - DIZZINESS [None]
  - HEADACHE [None]
  - HYPERACUSIS [None]
  - IMPAIRED WORK ABILITY [None]
  - NAUSEA [None]
  - PHOTOPHOBIA [None]
  - SHOCK [None]
  - TINNITUS [None]
  - VOMITING [None]
